FAERS Safety Report 16215868 (Version 1)
Quarter: 2019Q2

REPORT INFORMATION
  Report Type: Spontaneous
  Country: US (occurrence: US)
  Receive Date: 20190419
  Receipt Date: 20190419
  Transmission Date: 20190711
  Serious: No
  Sender: FDA-Public Use
  Company Number: US-INSMED, INC.-US-INS-19-00179

PATIENT
  Age: 71 Year
  Sex: Female

DRUGS (2)
  1. LAMIRA NEBULIZER SYSTEM [Suspect]
     Active Substance: DEVICE
  2. ARIKAYCE [Suspect]
     Active Substance: AMIKACIN
     Indication: MYCOBACTERIAL INFECTION
     Route: 055
     Dates: start: 201811

REACTIONS (6)
  - Inflammation [Unknown]
  - Product dose omission [Unknown]
  - Malaise [Unknown]
  - Productive cough [Unknown]
  - Dysphonia [Unknown]
  - Chest pain [Unknown]

NARRATIVE: CASE EVENT DATE: 20190311
